FAERS Safety Report 11812307 (Version 2)
Quarter: 2015Q4

REPORT INFORMATION
  Report Type: Report from Study
  Country: US (occurrence: US)
  Receive Date: 20151208
  Receipt Date: 20151230
  Transmission Date: 20160305
  Serious: No
  Sender: FDA-Public Use
  Company Number: US-009507513-1512USA004486

PATIENT

DRUGS (3)
  1. SOFOSBUVIR [Suspect]
     Active Substance: SOFOSBUVIR
     Indication: CHRONIC HEPATITIS C
  2. REBETOL [Suspect]
     Active Substance: RIBAVIRIN
     Indication: CHRONIC HEPATITIS C
     Dosage: 1000 MG WITH BODY WEIGHT {75 KG AND 1200 MG WITH BODY WEIGHT }75 KG
     Route: 048
  3. VELPATASVIR [Suspect]
     Active Substance: VELPATASVIR
     Indication: CHRONIC HEPATITIS C

REACTIONS (10)
  - Muscle spasms [Unknown]
  - Headache [Unknown]
  - Anaemia [Unknown]
  - Pruritus [Unknown]
  - Nausea [Unknown]
  - Cough [Unknown]
  - Dyspnoea [Unknown]
  - Insomnia [Unknown]
  - Fatigue [Unknown]
  - Diarrhoea [Unknown]
